FAERS Safety Report 6879251-2 (Version None)
Quarter: 2010Q3

REPORT INFORMATION
  Report Type: 
  Country: None (occurrence: None)
  Receive Date: 20100728
  Receipt Date: 20091026
  Transmission Date: 20110219
  Serious: No
  Sender: FDA-Public Use
  Company Number: US-ABBOTT-09P-163-0605535-00

PATIENT
  Sex: Female
  Weight: 59.02 kg

DRUGS (7)
  1. SYNTHROID [Suspect]
     Indication: AUTOIMMUNE THYROIDITIS
     Dosage: DAILY
     Route: 048
     Dates: start: 19970101
  2. SYNTHROID [Suspect]
     Route: 048
     Dates: start: 20091001
  3. SYNTHROID [Suspect]
  4. CYTOMEL [Concomitant]
     Indication: THYROID DISORDER
     Route: 048
  5. CALCIUM WITH VITAMIN D [Concomitant]
     Indication: HYPOCALCAEMIA
     Route: 048
  6. CALCIUM WITH VITAMIN D [Concomitant]
     Indication: PARATHYROID DISORDER
  7. MULTI-VITAMIN [Concomitant]
     Indication: VITAMIN SUPPLEMENTATION
     Route: 048

REACTIONS (5)
  - BLOOD THYROID STIMULATING HORMONE ABNORMAL [None]
  - INSOMNIA [None]
  - MYALGIA [None]
  - TREMOR [None]
  - WEIGHT FLUCTUATION [None]
